FAERS Safety Report 4539644-5 (Version None)
Quarter: 2004Q4

REPORT INFORMATION
  Report Type: 
  Country: None (occurrence: None)
  Receive Date: 20041228
  Receipt Date: 20041011
  Transmission Date: 20050328
  Serious: Yes (Hospitalization, Other)
  Sender: FDA-Public Use
  Company Number: DE-MERCK-0410DEU00318

PATIENT
  Age: 69 Year
  Sex: Female
  Weight: 57 kg

DRUGS (8)
  1. CIPROFLOXACIN HYDROCHLORIDE [Concomitant]
     Indication: SEPSIS
     Route: 048
     Dates: start: 20040906, end: 20041004
  2. OXYBUTYNIN [Concomitant]
     Route: 048
  3. ENOXAPARIN SODIUM [Concomitant]
     Indication: THROMBOSIS PROPHYLAXIS
     Route: 051
  4. VIOXX [Suspect]
     Indication: POLYARTHRITIS
     Route: 048
     Dates: start: 20030101, end: 20040901
  5. VIOXX [Suspect]
     Route: 048
     Dates: start: 20040901, end: 20041003
  6. LEFLUNOMIDE [Concomitant]
     Route: 048
  7. LEVOTHYROXINE SODIUM [Concomitant]
     Route: 048
  8. METHYLPREDNISOLONE [Concomitant]
     Indication: POLYARTHRITIS
     Route: 048

REACTIONS (4)
  - ARTHROPATHY [None]
  - CEREBROVASCULAR ACCIDENT [None]
  - PROSTHESIS IMPLANTATION [None]
  - SEPSIS [None]
